FAERS Safety Report 7798816-7 (Version None)
Quarter: 2011Q4

REPORT INFORMATION
  Report Type: 
  Country: None (occurrence: None)
  Receive Date: 20111005
  Receipt Date: 20111005
  Transmission Date: 20120403
  Serious: No
  Sender: FDA-Public Use
  Company Number: None

PATIENT
  Sex: Female
  Weight: 57.3 kg

DRUGS (2)
  1. TAXOL [Suspect]
     Dosage: 271 MG
  2. CARBOPLATIN [Suspect]
     Dosage: 485 MG

REACTIONS (1)
  - NEUTROPHIL COUNT ABNORMAL [None]
